FAERS Safety Report 21808632 (Version 1)
Quarter: 2023Q1

REPORT INFORMATION
  Report Type: Report from Study
  Country: CA (occurrence: CA)
  Receive Date: 20230103
  Receipt Date: 20230103
  Transmission Date: 20230418
  Serious: Yes (Other)
  Sender: FDA-Public Use
  Company Number: None

PATIENT
  Sex: Female

DRUGS (8)
  1. METHOTREXATE [Suspect]
     Active Substance: METHOTREXATE
     Indication: Product used for unknown indication
     Route: 065
  2. PREDNISONE [Suspect]
     Active Substance: PREDNISONE
     Indication: Product used for unknown indication
     Route: 065
  3. ACTEMRA [Suspect]
     Active Substance: TOCILIZUMAB
     Indication: Vasculitis
  4. BROMAZEPAM [Concomitant]
     Active Substance: BROMAZEPAM
  5. CALCIUM [Concomitant]
     Active Substance: CALCIUM
  6. CANDESARTAN [Concomitant]
     Active Substance: CANDESARTAN
  7. MAGNESIUM [Concomitant]
     Active Substance: MAGNESIUM
  8. ACTEMRA [Suspect]
     Active Substance: TOCILIZUMAB
     Indication: Vasculitis
     Dosage: 1 EVERY 1 WEEKS
     Route: 058

REACTIONS (2)
  - Ill-defined disorder [Unknown]
  - Renal impairment [Unknown]
